FAERS Safety Report 5592623-1 (Version None)
Quarter: 2008Q1

REPORT INFORMATION
  Report Type: 
  Country: None (occurrence: None)
  Receive Date: 20080114
  Receipt Date: 20071228
  Transmission Date: 20080703
  Serious: No
  Sender: FDA-Public Use
  Company Number: US022024

PATIENT

DRUGS (1)
  1. MODAFINIL [Suspect]
     Dosage: ONCE ORAL
     Route: 048

REACTIONS (1)
  - RASH [None]
